FAERS Safety Report 8264860-9 (Version None)
Quarter: 2012Q2

REPORT INFORMATION
  Report Type: 
  Country: None (occurrence: None)
  Receive Date: 20120406
  Receipt Date: 20120327
  Transmission Date: 20120825
  Serious: Yes (Congenital Anomaly, Other)
  Sender: FDA-Public Use
  Company Number: US-JNJFOC-20111203821

PATIENT
  Sex: Male

DRUGS (7)
  1. ALL OTHER THERAPEUTIC PRODUCT [Concomitant]
     Indication: PRODUCT USED FOR UNKNOWN INDICATION
     Route: 064
  2. TOPAMAX [Suspect]
     Indication: FOETAL EXPOSURE DURING PREGNANCY
     Route: 064
  3. VIMPAT [Suspect]
     Indication: FOETAL EXPOSURE DURING PREGNANCY
     Route: 064
  4. TOPAMAX [Suspect]
     Route: 064
     Dates: start: 20080708, end: 20090305
  5. KEPPRA [Suspect]
     Indication: FOETAL EXPOSURE DURING PREGNANCY
     Route: 064
  6. FOLIC ACID [Concomitant]
     Indication: PREGNANCY
     Route: 064
  7. CETIRIZINE HCL [Suspect]
     Indication: FOETAL EXPOSURE DURING PREGNANCY
     Route: 064

REACTIONS (6)
  - WEIGHT DECREASED [None]
  - CLEFT PALATE [None]
  - LOW SET EARS [None]
  - HEARING IMPAIRED [None]
  - CLEFT LIP [None]
  - SPEECH DISORDER [None]
